FAERS Safety Report 16380128 (Version 3)
Quarter: 2019Q3

REPORT INFORMATION
  Report Type: Spontaneous
  Country: US (occurrence: US)
  Receive Date: 20190601
  Receipt Date: 20190917
  Transmission Date: 20191004
  Serious: Yes (Other)
  Sender: FDA-Public Use
  Company Number: US-SHIRE-US201911635

PATIENT
  Sex: Female

DRUGS (2)
  1. GATTEX [Suspect]
     Active Substance: TEDUGLUTIDE\WATER
     Dosage: UNK
     Route: 050
     Dates: start: 20190510
  2. GATTEX [Suspect]
     Active Substance: TEDUGLUTIDE\WATER
     Indication: SHORT-BOWEL SYNDROME
     Dosage: 0.200 (UNIT UNKNOWN), 1X/DAY:QD
     Route: 058

REACTIONS (4)
  - Weight decreased [Unknown]
  - Incorrect dose administered [Not Recovered/Not Resolved]
  - Faecal volume increased [Unknown]
  - Stoma complication [Not Recovered/Not Resolved]
